FAERS Safety Report 6367938-X (Version None)
Quarter: 2009Q3

REPORT INFORMATION
  Report Type: 
  Country: None (occurrence: None)
  Receive Date: 20090922
  Receipt Date: 20090113
  Transmission Date: 20100115
  Serious: No
  Sender: FDA-Public Use
  Company Number: A0763436A

PATIENT
  Age: 60 Year
  Sex: Male

DRUGS (12)
  1. SEREVENT [Suspect]
     Indication: ASTHMA
     Dosage: 1PUFF TWICE PER DAY
     Route: 055
     Dates: start: 20081101
  2. AZMACORT [Concomitant]
  3. ATROVENT [Concomitant]
  4. PROVENTIL-HFA [Concomitant]
  5. ALBUTEROL [Concomitant]
  6. THEOPHYLLINE [Concomitant]
  7. POTASSIUM CHLORIDE [Concomitant]
  8. FUROSEMIDE [Concomitant]
  9. LISINOPRIL [Concomitant]
  10. UNSPECIFIED MEDICATION [Concomitant]
  11. METFORMIN HCL [Concomitant]
  12. SIMVASTATIN [Concomitant]

REACTIONS (1)
  - DRUG INEFFECTIVE [None]
